FAERS Safety Report 14425520 (Version 3)
Quarter: 2018Q1

REPORT INFORMATION
  Report Type: Spontaneous
  Country: DE (occurrence: DE)
  Receive Date: 20180123
  Receipt Date: 20180323
  Transmission Date: 20180509
  Serious: Yes (Life-Threatening, Hospitalization)
  Sender: FDA-Public Use
  Company Number: DE-FERRINGPH-2018FE00184

PATIENT

DRUGS (4)
  1. CLOMIPRAMIN [Suspect]
     Active Substance: CLOMIPRAMINE
     Indication: DEPRESSION
     Route: 048
     Dates: start: 20171223, end: 20171226
  2. HYDROCORTISON                      /00028601/ [Concomitant]
     Active Substance: HYDROCORTISONE
     Dosage: DAILY DOSE: 30 MG MILLGRAM(S) EVERY DAYS
  3. L-THYROXIN                         /00068002/ [Concomitant]
     Dosage: 100 ?G MICROGRAM(S) EVERY DAYS
  4. DESMOPRESSIN [Suspect]
     Active Substance: DESMOPRESSIN
     Indication: DIABETES INSIPIDUS
     Dosage: 4 ?G MICROGRAM(S) EVERY DAYS
     Route: 058
     Dates: start: 20171004

REACTIONS (3)
  - Polyuria [Recovering/Resolving]
  - Inappropriate antidiuretic hormone secretion [Recovering/Resolving]
  - Labelled drug-drug interaction medication error [Unknown]

NARRATIVE: CASE EVENT DATE: 20171224
